FAERS Safety Report 5796494-X (Version None)
Quarter: 2008Q3

REPORT INFORMATION
  Report Type: 
  Country: None (occurrence: None)
  Receive Date: 20080701
  Receipt Date: 20080620
  Transmission Date: 20090109
  Serious: Yes (Other)
  Sender: FDA-Public Use
  Company Number: A0713541A

PATIENT
  Age: 54 Year
  Sex: Male
  Weight: 75 kg

DRUGS (14)
  1. COMBIVIR [Suspect]
     Indication: HIV INFECTION
     Dosage: 1TAB TWICE PER DAY
     Route: 048
     Dates: start: 20080222
  2. KALETRA [Suspect]
     Indication: DRUG USE FOR UNKNOWN INDICATION
     Dosage: 2TABS TWICE PER DAY
     Route: 048
     Dates: start: 20080222
  3. TACROLIMUS [Concomitant]
  4. PREDNISONE [Concomitant]
     Dosage: 10MG PER DAY
  5. NEXIUM [Concomitant]
     Dosage: 40MG PER DAY
  6. MYCOPHENOLATE MOFETIL [Concomitant]
     Dosage: 1000MG TWICE PER DAY
  7. BACTRIM [Concomitant]
     Dosage: 1TAB THREE TIMES PER DAY
  8. ACYCLOVIR SODIUM [Concomitant]
     Dosage: 800MG THREE TIMES PER DAY
     Route: 048
  9. CLOTRIMAZOLE [Concomitant]
     Dosage: 10MG THREE TIMES PER DAY
  10. OSCAL [Concomitant]
     Dosage: 500MG THREE TIMES PER DAY
  11. M.V.I. [Concomitant]
     Dosage: 1TAB PER DAY
  12. COLACE [Concomitant]
     Dosage: 100MG THREE TIMES PER DAY
  13. MAGNESIUM GLUCONATE [Concomitant]
     Dosage: 500MG TWICE PER DAY
  14. ASPIRIN [Concomitant]
     Dosage: 81MG PER DAY

REACTIONS (8)
  - ALANINE AMINOTRANSFERASE INCREASED [None]
  - ASPARTATE AMINOTRANSFERASE INCREASED [None]
  - BILIRUBIN CONJUGATED INCREASED [None]
  - BLOOD ALKALINE PHOSPHATASE INCREASED [None]
  - BLOOD BILIRUBIN INCREASED [None]
  - BLOOD LACTATE DEHYDROGENASE INCREASED [None]
  - GAMMA-GLUTAMYLTRANSFERASE INCREASED [None]
  - HEPATOTOXICITY [None]
